FAERS Safety Report 20442199 (Version 3)
Quarter: 2022Q3

REPORT INFORMATION
  Report Type: Spontaneous
  Country: JP (occurrence: JP)
  Receive Date: 20220208
  Receipt Date: 20220715
  Transmission Date: 20221027
  Serious: No
  Sender: FDA-Public Use
  Company Number: JP-GLAXOSMITHKLINE-JP2022JPN018366

PATIENT

DRUGS (7)
  1. SOTROVIMAB [Suspect]
     Active Substance: SOTROVIMAB
     Indication: COVID-19
     Dosage: UNK
     Dates: start: 20220131
  2. ACETAMINOPHEN [Suspect]
     Active Substance: ACETAMINOPHEN
     Indication: Analgesic therapy
     Dosage: 1500 MG
     Route: 048
     Dates: start: 20211028, end: 20211103
  3. ACETAMINOPHEN [Suspect]
     Active Substance: ACETAMINOPHEN
     Indication: Headache
     Dosage: 500 MG,TIME OF HEADACHE
     Route: 048
     Dates: start: 20220201, end: 20220204
  4. DIETARY SUPPLEMENT\PROBIOTICS [Suspect]
     Active Substance: DIETARY SUPPLEMENT\PROBIOTICS
     Indication: Gastroenteritis
     Dosage: 3 DF
     Route: 048
     Dates: start: 20220120, end: 20220126
  5. NAUZELIN [Suspect]
     Active Substance: DOMPERIDONE
     Indication: Gastroenteritis
     Dosage: 10 MG, AT THE ONSET OF FEELING QUEASY
     Dates: start: 20220120
  6. SODIUM PICOSULFATE [Suspect]
     Active Substance: SODIUM PICOSULFATE
     Indication: Constipation
     Dosage: 10 DF, AT THE TIME OF CONSTIPATION
     Route: 048
     Dates: start: 20220201
  7. DEQUALINIUM CHLORIDE [Suspect]
     Active Substance: DEQUALINIUM CHLORIDE
     Indication: Oropharyngeal pain
     Dosage: 3 DF
     Route: 048
     Dates: start: 20220201, end: 20220205

REACTIONS (1)
  - Exposure during pregnancy [Unknown]
